FAERS Safety Report 6626702-4 (Version None)
Quarter: 2010Q1

REPORT INFORMATION
  Report Type: 
  Country: None (occurrence: None)
  Receive Date: 20100308
  Receipt Date: 20100222
  Transmission Date: 20100710
  Serious: Yes (Hospitalization)
  Sender: FDA-Public Use
  Company Number: 519295

PATIENT
  Sex: Female

DRUGS (2)
  1. ACYCLOVIR [Suspect]
     Indication: HERPES ZOSTER
     Dosage: UNKNWON, UNKNOWN, NOT REPORTED
     Dates: start: 20100120
  2. REMICADE [Suspect]
     Indication: CROHN'S DISEASE
     Dosage: ONCE EVERY 6 WEEKS, UNKNOWN, INTRAVENOUS
     Route: 042
     Dates: start: 20071101

REACTIONS (4)
  - ASPARTATE AMINOTRANSFERASE INCREASED [None]
  - BLOOD ALBUMIN DECREASED [None]
  - GAMMA-GLUTAMYLTRANSFERASE INCREASED [None]
  - HERPES ZOSTER [None]
